FAERS Safety Report 22118491 (Version 1)
Quarter: 2023Q1

REPORT INFORMATION
  Report Type: Spontaneous
  Country: US (occurrence: US)
  Receive Date: 20230321
  Receipt Date: 20230321
  Transmission Date: 20230418
  Serious: Yes (Other)
  Sender: FDA-Public Use
  Company Number: US-SA-2023SA082215

PATIENT
  Age: 56 Year
  Sex: Female

DRUGS (1)
  1. GOLD BOND MEDICATED EXTRA STRENGTH BODY [Suspect]
     Active Substance: MENTHOL
     Dosage: UNK

REACTIONS (1)
  - Epithelioid mesothelioma [Unknown]

NARRATIVE: CASE EVENT DATE: 20221020
